FAERS Safety Report 9383983 (Version 1)
Quarter: 2013Q3

REPORT INFORMATION
  Report Type: Spontaneous
  Country: AU (occurrence: AU)
  Receive Date: 20130705
  Receipt Date: 20130705
  Transmission Date: 20140515
  Serious: Yes (Hospitalization, Other)
  Sender: FDA-Public Use
  Company Number: AU-JNJFOC-20130614155

PATIENT
  Sex: Female
  Weight: 41 kg

DRUGS (5)
  1. DUROGESIC [Suspect]
     Indication: PRODUCT USED FOR UNKNOWN INDICATION
     Route: 062
  2. PARIET [Concomitant]
     Route: 048
  3. CELAPRAM [Concomitant]
     Route: 065
  4. METRONIDAZOLE [Concomitant]
     Route: 065
  5. EPILIM [Concomitant]
     Route: 065

REACTIONS (13)
  - Intestinal obstruction [Recovered/Resolved]
  - Delirium [Recovering/Resolving]
  - Substance-induced psychotic disorder [Recovering/Resolving]
  - Blood creatinine increased [Recovered/Resolved]
  - Fall [Recovered/Resolved]
  - Blood sodium decreased [Recovered/Resolved]
  - Abnormal behaviour [Not Recovered/Not Resolved]
  - Confusional state [Not Recovered/Not Resolved]
  - Crying [Not Recovered/Not Resolved]
  - Scar [Recovered/Resolved]
  - Inappropriate affect [Not Recovered/Not Resolved]
  - Abnormal dreams [Recovering/Resolving]
  - Treatment noncompliance [Not Recovered/Not Resolved]
